FAERS Safety Report 5632127-0 (Version None)
Quarter: 2008Q1

REPORT INFORMATION
  Report Type: 
  Country: None (occurrence: None)
  Receive Date: 20080220
  Receipt Date: 20080213
  Transmission Date: 20080703
  Serious: Yes (Hospitalization)
  Sender: FDA-Public Use
  Company Number: NO-MERCK-0802NOR00003

PATIENT
  Age: 75 Year
  Sex: Female

DRUGS (7)
  1. ZOCOR [Suspect]
     Route: 048
  2. ISOSORBIDE MONONITRATE [Interacting]
     Route: 048
  3. DILTIAZEM HYDROCHLORIDE [Suspect]
     Route: 065
  4. RANITIDINE HYDROCHLORIDE [Concomitant]
     Indication: DYSPEPSIA
     Route: 065
  5. LATANOPROST [Concomitant]
     Route: 065
  6. ASPIRIN AND MAGNESIUM OXIDE [Concomitant]
     Route: 048
  7. DORZOLAMIDE HYDROCHLORIDE AND TIMOLOL MALEATE [Concomitant]
     Route: 065

REACTIONS (2)
  - DRUG INTERACTION [None]
  - RHABDOMYOLYSIS [None]
